FAERS Safety Report 7394959-0 (Version None)
Quarter: 2011Q2

REPORT INFORMATION
  Report Type: 
  Country: None (occurrence: None)
  Receive Date: 20110405
  Receipt Date: 20110404
  Transmission Date: 20111010
  Serious: Yes (Other)
  Sender: FDA-Public Use
  Company Number: US-CEPHALON-2009005958

PATIENT
  Sex: Male
  Weight: 89 kg

DRUGS (2)
  1. OPANA [Concomitant]
     Route: 048
     Dates: start: 20070101
  2. FENTORA [Suspect]
     Indication: BACK PAIN
     Route: 002
     Dates: start: 20070101, end: 20090522

REACTIONS (5)
  - DENTAL CARIES [None]
  - PAIN IN EXTREMITY [None]
  - URINARY RETENTION [None]
  - TOOTH LOSS [None]
  - HYPERHIDROSIS [None]
